FAERS Safety Report 24716150 (Version 1)
Quarter: 2024Q4

REPORT INFORMATION
  Report Type: Spontaneous
  Country: CN (occurrence: CN)
  Receive Date: 20241210
  Receipt Date: 20241210
  Transmission Date: 20250115
  Serious: Yes (Other)
  Sender: NOVARTIS
  Company Number: CN-002147023-NVSC2024CN232297

PATIENT
  Age: 63 Year
  Sex: Female
  Weight: 60 kg

DRUGS (3)
  1. SACUBITRIL\VALSARTAN [Suspect]
     Active Substance: SACUBITRIL\VALSARTAN
     Indication: Hypertension
     Dosage: 200 MG, BID
     Route: 048
     Dates: start: 20241114, end: 20241118
  2. NIFEDIPINE [Suspect]
     Active Substance: NIFEDIPINE
     Indication: Blood pressure decreased
     Dosage: 30 MG, BID (CONTROLLED-RELEASE TABLETS)
     Route: 065
     Dates: start: 20241114
  3. BISOPROLOL FUMARATE [Suspect]
     Active Substance: BISOPROLOL FUMARATE
     Indication: Blood pressure decreased
     Dosage: 5 MG, QD
     Route: 065
     Dates: start: 20241114

REACTIONS (4)
  - Hepatic function abnormal [Recovering/Resolving]
  - Blood pressure increased [Unknown]
  - Blood pressure systolic increased [Unknown]
  - Blood pressure diastolic increased [Unknown]

NARRATIVE: CASE EVENT DATE: 20241118
